FAERS Safety Report 6695461-1 (Version None)
Quarter: 2010Q2

REPORT INFORMATION
  Report Type: 
  Country: None (occurrence: None)
  Receive Date: 20100422
  Receipt Date: 20100422
  Transmission Date: 20101027
  Serious: Yes (Hospitalization)
  Sender: FDA-Public Use
  Company Number: None

PATIENT
  Age: 87 Year
  Sex: Female
  Weight: 51.27 kg

DRUGS (10)
  1. CYTARABINE [Suspect]
     Indication: ACUTE MYELOID LEUKAEMIA
     Dosage: 31.2 MG SC
     Route: 058
     Dates: start: 20100227, end: 20100303
  2. G-CSF 300 MG DAY 1-5 EVERY 28D [Suspect]
     Indication: ACUTE MYELOID LEUKAEMIA
     Dosage: 300 MG SC
     Route: 058
     Dates: start: 20100329, end: 20100402
  3. DACITABINE 20 MG/M2 DAY 1-5 EVERY 28 DAYS [Suspect]
     Dosage: 31.2 MG IV DAILY D1-5
     Route: 042
     Dates: start: 20100227, end: 20100303
  4. DACITABINE 20 MG/M2 DAY 1-5 EVERY 28 DAYS [Suspect]
     Dosage: 31.2 MG IV DAILY D1-5
     Route: 042
     Dates: start: 20100329, end: 20100402
  5. PROPRANOLOL [Concomitant]
  6. PRILOSEC [Concomitant]
  7. REGLAN [Concomitant]
  8. POTASSIUM CHLORIDE [Concomitant]
  9. VORICONAZOLE [Concomitant]
  10. NEUTROPHOS [Concomitant]

REACTIONS (5)
  - ANAEMIA [None]
  - BLOOD PRESSURE DIASTOLIC DECREASED [None]
  - CONFUSIONAL STATE [None]
  - PLATELET COUNT DECREASED [None]
  - SYNCOPE [None]
